FAERS Safety Report 24238456 (Version 4)
Quarter: 2024Q3

REPORT INFORMATION
  Report Type: Spontaneous
  Country: US (occurrence: US)
  Receive Date: 20240822
  Receipt Date: 20240822
  Transmission Date: 20241016
  Serious: No
  Sender: DERMAVANT SCIENCES
  Company Number: US-Dermavant-001191

PATIENT
  Sex: Female

DRUGS (2)
  1. VTAMA [Suspect]
     Active Substance: TAPINAROF
     Indication: Psoriasis
     Route: 061
     Dates: start: 20240313, end: 20240507
  2. ATORVASTATIN [Concomitant]
     Active Substance: ATORVASTATIN
     Route: 048

REACTIONS (3)
  - Application site acne [Recovering/Resolving]
  - Application site rash [Recovering/Resolving]
  - Application site pain [Recovering/Resolving]
